FAERS Safety Report 20914932 (Version 1)
Quarter: 2022Q2

REPORT INFORMATION
  Report Type: Spontaneous
  Country: US (occurrence: US)
  Receive Date: 20220604
  Receipt Date: 20220604
  Transmission Date: 20220721
  Serious: No
  Sender: FDA-Public Use
  Company Number: US-SA-SAC20220527000442

PATIENT
  Sex: Female

DRUGS (9)
  1. DUPIXENT [Suspect]
     Active Substance: DUPILUMAB
     Indication: Dermatitis atopic
     Dosage: 300 MG, QOW
     Route: 058
  2. KYLEENA [Concomitant]
     Active Substance: LEVONORGESTREL
     Dosage: 17.5MCG/24 IUD
  3. ZYRTEC [Concomitant]
     Active Substance: CETIRIZINE HYDROCHLORIDE
  4. ARAZLO [Concomitant]
     Active Substance: TAZAROTENE
  5. TAZAROTENE [Concomitant]
     Active Substance: TAZAROTENE
  6. PERMETHRIN [Concomitant]
     Active Substance: PERMETHRIN
     Dosage: UNK
  7. SERTRALINE HYDROCHLORIDE [Concomitant]
     Active Substance: SERTRALINE HYDROCHLORIDE
  8. MONTELUKAST SODIUM [Concomitant]
     Active Substance: MONTELUKAST SODIUM
  9. VACUNA COVID-19 PFIZER BIONTECH [Concomitant]

REACTIONS (3)
  - Acne [Unknown]
  - Eczema [Unknown]
  - Product dose omission issue [Unknown]
